FAERS Safety Report 11567356 (Version 6)
Quarter: 2016Q3

REPORT INFORMATION
  Report Type: Spontaneous
  Country: CA (occurrence: CA)
  Receive Date: 20150929
  Receipt Date: 20160921
  Transmission Date: 20161109
  Serious: Yes (Life-Threatening, Hospitalization, Other)
  Sender: FDA-Public Use
  Company Number: CA-ROCHE-1638076

PATIENT
  Age: 8 Year
  Sex: Female
  Weight: 64 kg

DRUGS (19)
  1. ETANERCEPT [Suspect]
     Active Substance: ETANERCEPT
     Route: 058
     Dates: start: 200703, end: 200706
  2. INFLIXIMAB [Suspect]
     Active Substance: INFLIXIMAB
     Indication: JUVENILE IDIOPATHIC ARTHRITIS
     Route: 042
     Dates: start: 200707, end: 200803
  3. TRIAMCINOLONE [Suspect]
     Active Substance: TRIAMCINOLONE
     Route: 065
     Dates: start: 201402, end: 2014
  4. IVIG [Suspect]
     Active Substance: HUMAN IMMUNOGLOBULIN G
     Indication: JUVENILE IDIOPATHIC ARTHRITIS
     Route: 042
     Dates: start: 200806, end: 200808
  5. ACTEMRA [Suspect]
     Active Substance: TOCILIZUMAB
     Indication: JUVENILE IDIOPATHIC ARTHRITIS
     Route: 042
     Dates: start: 201110, end: 201203
  6. PREDNISONE. [Suspect]
     Active Substance: PREDNISONE
     Indication: JUVENILE IDIOPATHIC ARTHRITIS
     Route: 048
     Dates: start: 200510
  7. HYDROXYCHLOROQUINE [Suspect]
     Active Substance: HYDROXYCHLOROQUINE
     Indication: JUVENILE IDIOPATHIC ARTHRITIS
     Route: 048
     Dates: end: 2014
  8. ETANERCEPT [Suspect]
     Active Substance: ETANERCEPT
     Indication: JUVENILE IDIOPATHIC ARTHRITIS
     Route: 058
     Dates: start: 200608
  9. NAPROXEN. [Suspect]
     Active Substance: NAPROXEN
     Indication: JUVENILE IDIOPATHIC ARTHRITIS
     Route: 065
     Dates: start: 2005
  10. SULFASALAZINE. [Suspect]
     Active Substance: SULFASALAZINE
     Indication: JUVENILE IDIOPATHIC ARTHRITIS
     Route: 048
     Dates: end: 2014
  11. METHOTREXATE. [Suspect]
     Active Substance: METHOTREXATE
     Route: 065
     Dates: start: 2005
  12. ABATACEPT [Suspect]
     Active Substance: ABATACEPT
     Indication: JUVENILE IDIOPATHIC ARTHRITIS
     Dosage: THERAPY DURATION: 3 MONTHS
     Route: 042
     Dates: start: 201007, end: 201009
  13. ADALIMUMAB [Suspect]
     Active Substance: ADALIMUMAB
     Indication: JUVENILE IDIOPATHIC ARTHRITIS
     Dosage: THERAPY DURATION: 3 MONTHS
     Route: 065
     Dates: start: 200804, end: 200806
  14. INFLIXIMAB [Suspect]
     Active Substance: INFLIXIMAB
     Route: 042
     Dates: start: 200711, end: 200803
  15. IVIG [Suspect]
     Active Substance: HUMAN IMMUNOGLOBULIN G
     Dosage: THERAPY DURATION: 3 MONTHS
     Route: 042
     Dates: start: 201501
  16. METHOTREXATE. [Suspect]
     Active Substance: METHOTREXATE
     Indication: JUVENILE IDIOPATHIC ARTHRITIS
     Route: 058
     Dates: start: 2005, end: 2014
  17. PREDNISONE. [Suspect]
     Active Substance: PREDNISONE
     Route: 048
     Dates: end: 201501
  18. ANAKINRA [Suspect]
     Active Substance: ANAKINRA
     Indication: JUVENILE IDIOPATHIC ARTHRITIS
     Dosage: THERAPY DURATION: 3 YEARS
     Route: 058
     Dates: start: 200808, end: 201007
  19. TRIAMCINOLONE [Suspect]
     Active Substance: TRIAMCINOLONE
     Indication: JUVENILE IDIOPATHIC ARTHRITIS
     Route: 065

REACTIONS (19)
  - Drug ineffective [Unknown]
  - Condition aggravated [Unknown]
  - Juvenile idiopathic arthritis [Unknown]
  - Vomiting [Unknown]
  - Obesity [Unknown]
  - Drug intolerance [Unknown]
  - Bone density decreased [Unknown]
  - Red blood cell sedimentation rate increased [Unknown]
  - Septic shock [Unknown]
  - Activities of daily living impaired [Unknown]
  - C-reactive protein increased [Unknown]
  - Antibody test positive [Unknown]
  - Mobility decreased [Unknown]
  - Polyarthritis [Unknown]
  - Dizziness [Unknown]
  - Diarrhoea [Unknown]
  - Psoriasis [Unknown]
  - Nausea [Unknown]
  - Adrenal insufficiency [Unknown]

NARRATIVE: CASE EVENT DATE: 201203
